FAERS Safety Report 5252477-X (Version None)
Quarter: 2007Q1

REPORT INFORMATION
  Report Type: 
  Country: None (occurrence: None)
  Receive Date: 20070301
  Receipt Date: 20061204
  Transmission Date: 20070707
  Serious: No
  Sender: FDA-Public Use
  Company Number: US-BRISTOL-MYERS SQUIBB COMPANY-13599873

PATIENT
  Age: 5 Decade
  Sex: Female

DRUGS (5)
  1. ERBITUX [Suspect]
     Indication: LUNG NEOPLASM MALIGNANT
     Route: 042
  2. TAXOL [Suspect]
  3. CARBOPLATIN [Suspect]
  4. BENADRYL [Concomitant]
  5. MULTI-VITAMIN [Concomitant]

REACTIONS (1)
  - HAIR GROWTH ABNORMAL [None]
